FAERS Safety Report 5831065-8 (Version None)
Quarter: 2008Q3

REPORT INFORMATION
  Report Type: 
  Country: None (occurrence: None)
  Receive Date: 20080801
  Receipt Date: 20080728
  Transmission Date: 20090109
  Serious: Yes (Other)
  Sender: FDA-Public Use
  Company Number: GR-GENENTECH-265390

PATIENT
  Age: 73 Year
  Sex: Male

DRUGS (3)
  1. ACTIVASE [Suspect]
     Indication: RETINAL VEIN OCCLUSION
     Dosage: 50 A?G, SINGLE
     Route: 031
     Dates: start: 20021101
  2. LIDOCAINE [Concomitant]
     Indication: ANAESTHESIA
     Dosage: 2 %, UNK
     Route: 056
     Dates: start: 20021101
  3. BUPIVACAINE [Concomitant]
     Indication: ANAESTHESIA
     Dosage: 5 %, UNK
     Route: 056
     Dates: start: 20021101

REACTIONS (2)
  - DRUG INEFFECTIVE [None]
  - MACULOPATHY [None]
